FAERS Safety Report 5139530-6 (Version None)
Quarter: 2006Q4

REPORT INFORMATION
  Report Type: 
  Country: None (occurrence: None)
  Receive Date: 20061024
  Receipt Date: 20061012
  Transmission Date: 20070319
  Serious: Yes (Other)
  Sender: FDA-Public Use
  Company Number: 2006125033

PATIENT
  Age: 73 Year
  Sex: Male

DRUGS (4)
  1. NIFEDIPINE [Suspect]
     Dosage: 120 MG, ORAL
     Route: 048
  2. ASPIRIN [Concomitant]
  3. METOPROLOL TARTRATE [Concomitant]
  4. MICARDIS [Concomitant]

REACTIONS (1)
  - HALLUCINATIONS, MIXED [None]
